FAERS Safety Report 7445880-0 (Version None)
Quarter: 2011Q2

REPORT INFORMATION
  Report Type: 
  Country: None (occurrence: None)
  Receive Date: 20110429
  Receipt Date: 20110420
  Transmission Date: 20111010
  Serious: Yes (Death, Life-Threatening, Hospitalization)
  Sender: FDA-Public Use
  Company Number: US-ABBOTT-08P-163-0474341-07

PATIENT
  Sex: Female

DRUGS (15)
  1. ATENOLOL [Concomitant]
     Indication: HYPERTENSION
     Route: 048
     Dates: start: 19900101
  2. MIRLAX [Concomitant]
     Indication: CONSTIPATION
     Dosage: 1 TABLESPOON
     Route: 048
     Dates: start: 20050825
  3. PREDNISONE [Concomitant]
     Indication: RHEUMATOID ARTHRITIS
     Route: 048
     Dates: start: 20070801
  4. ZOCOR [Concomitant]
     Indication: HYPERCHOLESTEROLAEMIA
     Route: 048
     Dates: start: 19900101
  5. EFFEXOR XR [Concomitant]
     Indication: DEPRESSION
     Route: 048
     Dates: start: 20031007
  6. COZAAR [Concomitant]
     Indication: HYPERTENSION
     Route: 048
     Dates: start: 20020220
  7. MACUGEN [Concomitant]
     Indication: MACULAR DEGENERATION
     Dates: start: 20070604
  8. CELEBREX [Concomitant]
     Indication: RHEUMATOID ARTHRITIS
     Route: 048
     Dates: start: 19990205
  9. ACTOS [Concomitant]
     Indication: DIABETES MELLITUS
     Route: 048
     Dates: start: 20040611
  10. BENADRYL [Concomitant]
     Indication: PRURITUS
     Route: 048
     Dates: start: 20031008, end: 20031215
  11. RECLAST [Concomitant]
     Indication: OSTEOPOROSIS
     Dates: start: 20080519
  12. HUMIRA [Suspect]
     Indication: RHEUMATOID ARTHRITIS
     Route: 058
     Dates: start: 20000706, end: 20080717
  13. CALCIUM [Concomitant]
     Indication: MINERAL SUPPLEMENTATION
     Route: 048
     Dates: start: 20020810
  14. FENTANYL [Concomitant]
     Indication: BACK PAIN
     Route: 062
     Dates: start: 20060616
  15. VICODIN [Concomitant]
     Indication: ARTHRALGIA
     Route: 048
     Dates: start: 20080110

REACTIONS (4)
  - SEPSIS [None]
  - MYOCARDIAL INFARCTION [None]
  - URINARY TRACT INFECTION [None]
  - ATRIAL FIBRILLATION [None]
